FAERS Safety Report 7122278-6 (Version None)
Quarter: 2010Q4

REPORT INFORMATION
  Report Type: 
  Country: None (occurrence: None)
  Receive Date: 20101122
  Receipt Date: 20101122
  Transmission Date: 20110411
  Serious: Yes (Other)
  Sender: FDA-Public Use
  Company Number: None

PATIENT
  Age: 55 Year
  Sex: Male
  Weight: 72.5755 kg

DRUGS (2)
  1. VALACYCLOVIR HYDROCHLORIDE [Suspect]
     Indication: HERPES ZOSTER
     Dosage: 30 1X PER DAY PO
     Route: 048
     Dates: start: 20100803, end: 20101118
  2. VALACYCLOVIR HYDROCHLORIDE [Suspect]

REACTIONS (7)
  - BURNING SENSATION [None]
  - DISEASE PRODROMAL STAGE [None]
  - HYPERAESTHESIA [None]
  - NEURALGIA [None]
  - PRODUCT SUBSTITUTION ISSUE [None]
  - RENAL DISORDER [None]
  - SKIN LESION [None]
